FAERS Safety Report 5788345-4 (Version None)
Quarter: 2008Q2

REPORT INFORMATION
  Report Type: 
  Country: None (occurrence: None)
  Receive Date: 20080625
  Receipt Date: 20080618
  Transmission Date: 20081010
  Serious: Yes (Disabling)
  Sender: FDA-Public Use
  Company Number: BE-PFIZER INC-2008049523

PATIENT
  Sex: Female

DRUGS (4)
  1. SU-011,248 [Suspect]
     Route: 048
     Dates: start: 20080407, end: 20080428
  2. SU-011,248 [Suspect]
     Route: 048
     Dates: start: 20080522, end: 20080528
  3. OMEPRAZOLE [Concomitant]
  4. ALDACTAZIDE [Concomitant]

REACTIONS (1)
  - NEUROPATHY PERIPHERAL [None]
